FAERS Safety Report 4502491-4 (Version None)
Quarter: 2004Q4

REPORT INFORMATION
  Report Type: 
  Country: None (occurrence: None)
  Receive Date: 20041112
  Receipt Date: 20041029
  Transmission Date: 20050328
  Serious: Yes (Death)
  Sender: FDA-Public Use
  Company Number: HQWYE177429OCT04

PATIENT
  Age: 98 Year
  Sex: Female

DRUGS (3)
  1. CORDARONE [Suspect]
     Dosage: 200 MG TABLET
     Route: 048
  2. AMLODIPINE BESYLATE [Concomitant]
  3. OROCAL (CALCIUM CRBONATE) [Concomitant]

REACTIONS (2)
  - ATRIOVENTRICULAR BLOCK COMPLETE [None]
  - MYOCARDIAL ISCHAEMIA [None]
